FAERS Safety Report 17756195 (Version 2)
Quarter: 2020Q3

REPORT INFORMATION
  Report Type: Spontaneous
  Country: US (occurrence: US)
  Receive Date: 20200507
  Receipt Date: 20200710
  Transmission Date: 20201102
  Serious: Yes (Other)
  Sender: FDA-Public Use
  Company Number: US-BAYER-2020-076819

PATIENT
  Age: 27 Year
  Sex: Female

DRUGS (2)
  1. MIRENA [Suspect]
     Active Substance: LEVONORGESTREL
     Indication: CONTRACEPTION
     Dosage: 20 ?G PER DAY CONTINUOUSLY
     Route: 015
     Dates: start: 201607
  2. SPIRONOLACTONE. [Concomitant]
     Active Substance: SPIRONOLACTONE
     Indication: SKIN DISORDER

REACTIONS (13)
  - Gastrooesophageal reflux disease [None]
  - Polycystic ovaries [None]
  - Nausea [None]
  - Abdominal pain upper [None]
  - Genital haemorrhage [None]
  - Eczema [None]
  - Vaginal haemorrhage [None]
  - Abdominal pain [None]
  - Amenorrhoea [Recovered/Resolved]
  - Acne [None]
  - Hirsutism [None]
  - Photophobia [None]
  - Feeling abnormal [None]
